FAERS Safety Report 19961975 (Version 3)
Quarter: 2021Q4

REPORT INFORMATION
  Report Type: Spontaneous
  Country: US (occurrence: US)
  Receive Date: 20211018
  Receipt Date: 20211129
  Transmission Date: 20220303
  Serious: No
  Sender: FDA-Public Use
  Company Number: US-TEVA-2021-US-1964813

PATIENT
  Age: 63 Year
  Sex: Female

DRUGS (2)
  1. ESOMEPRAZOLE MAGNESIUM [Suspect]
     Active Substance: ESOMEPRAZOLE MAGNESIUM
     Indication: Gastrooesophageal reflux disease
     Dosage: DOSAGE FORM: CAPSULES - DELAYED RELEASE
     Route: 065
  2. ESOMEPRAZOLE MAGNESIUM [Suspect]
     Active Substance: ESOMEPRAZOLE MAGNESIUM
     Indication: Gastrooesophageal reflux disease
     Dosage: DOSAGE FORM: CAPSULES - DELAYED RELEASE
     Route: 065
     Dates: start: 2021

REACTIONS (5)
  - Oesophageal spasm [Recovered/Resolved]
  - Abdominal pain upper [Recovered/Resolved]
  - Feeding disorder [Recovered/Resolved]
  - Drug ineffective [Unknown]
  - Product quality issue [Unknown]

NARRATIVE: CASE EVENT DATE: 20210101
